FAERS Safety Report 13035022 (Version 1)
Quarter: 2016Q4

REPORT INFORMATION
  Report Type: Report from Study
  Country: CA (occurrence: CA)
  Receive Date: 20161216
  Receipt Date: 20161216
  Transmission Date: 20170207
  Serious: Yes (Other)
  Sender: FDA-Public Use
  Company Number: CA-JNJFOC-20161210107

PATIENT
  Age: 15 Year
  Sex: Male
  Weight: 96 kg

DRUGS (1)
  1. REMICADE [Suspect]
     Active Substance: INFLIXIMAB
     Indication: CROHN^S DISEASE
     Route: 042
     Dates: start: 20160201

REACTIONS (4)
  - Sports injury [Recovering/Resolving]
  - Off label use [Unknown]
  - Product use issue [Unknown]
  - Wrist fracture [Recovering/Resolving]

NARRATIVE: CASE EVENT DATE: 20160201
